FAERS Safety Report 6625540-6 (Version None)
Quarter: 2010Q1

REPORT INFORMATION
  Report Type: 
  Country: None (occurrence: None)
  Receive Date: 20100223
  Receipt Date: 20091030
  Transmission Date: 20100710
  Serious: Yes (Other)
  Sender: FDA-Public Use
  Company Number: 8054018

PATIENT
  Sex: Female

DRUGS (1)
  1. CERTOLIZUMAB PEGOL (UCB, INC) [Suspect]
     Indication: CROHN'S DISEASE
     Dosage: 400 MG, ONCE MONTHLY SUBCUTANEOUS
     Route: 058
     Dates: start: 20090709

REACTIONS (1)
  - DRUG EFFECT DECREASED [None]
